FAERS Safety Report 5720930-8 (Version None)
Quarter: 2008Q2

REPORT INFORMATION
  Report Type: 
  Country: None (occurrence: None)
  Receive Date: 20080425
  Receipt Date: 20080425
  Transmission Date: 20081010
  Serious: Yes (Hospitalization)
  Sender: FDA-Public Use
  Company Number: None

PATIENT
  Sex: Female
  Weight: 58.9676 kg

DRUGS (1)
  1. DEPO-PROVERA [Suspect]
     Indication: ENDOMETRIOSIS
     Dosage: SHOT EVERY THREE MONTHS INTRA-ARTERIAL
     Route: 013
     Dates: start: 20071015, end: 20080115

REACTIONS (7)
  - ABNORMAL BEHAVIOUR [None]
  - EMOTIONAL DISORDER [None]
  - MEMORY IMPAIRMENT [None]
  - MIGRAINE [None]
  - NERVOUS SYSTEM DISORDER [None]
  - PAIN [None]
  - VAGINAL HAEMORRHAGE [None]
